FAERS Safety Report 9743238 (Version 2)
Quarter: 2015Q3

REPORT INFORMATION
  Report Type: Spontaneous
  Country: US (occurrence: US)
  Receive Date: 20131210
  Receipt Date: 20150804
  Transmission Date: 20151125
  Serious: No
  Sender: FDA-Public Use
  Company Number: US-GILEAD-2009-0025088

PATIENT
  Age: 66 Year
  Sex: Male

DRUGS (11)
  1. POTASSIUM [Concomitant]
     Active Substance: POTASSIUM
  2. LETAIRIS [Suspect]
     Active Substance: AMBRISENTAN
     Indication: PULMONARY ARTERIAL HYPERTENSION
     Route: 048
     Dates: start: 20090918
  3. WARFARIN [Concomitant]
     Active Substance: WARFARIN
  4. EXFORGE [Concomitant]
     Active Substance: AMLODIPINE BESYLATE\VALSARTAN
  5. LASIX [Concomitant]
     Active Substance: FUROSEMIDE
  6. NAPROXEN. [Concomitant]
     Active Substance: NAPROXEN
  7. REVATIO [Concomitant]
     Active Substance: SILDENAFIL CITRATE
  8. COUMADIN [Concomitant]
     Active Substance: WARFARIN SODIUM
  9. ATACAND [Concomitant]
     Active Substance: CANDESARTAN CILEXETIL
  10. LIPITOR [Concomitant]
     Active Substance: ATORVASTATIN CALCIUM
  11. GLIPIZIDE. [Concomitant]
     Active Substance: GLIPIZIDE

REACTIONS (5)
  - Swelling face [Recovered/Resolved]
  - Peripheral swelling [Recovered/Resolved]
  - Weight increased [Recovered/Resolved]
  - Fluid retention [Recovered/Resolved]
  - Flushing [Recovered/Resolved]
